FAERS Safety Report 7562493-0 (Version None)
Quarter: 2011Q2

REPORT INFORMATION
  Report Type: 
  Country: None (occurrence: None)
  Receive Date: 20110621
  Receipt Date: 20110621
  Transmission Date: 20111010
  Serious: Yes (Other)
  Sender: FDA-Public Use
  Company Number: None

PATIENT
  Age: 44 Year
  Sex: Female
  Weight: 67 kg

DRUGS (5)
  1. ONDANSENTRON [Concomitant]
  2. ADRIAMYCIN PFS [Concomitant]
  3. DEXAMETHASONE [Concomitant]
  4. FOSAPREPITANT 150MG PER VIAL MERCK SHARP + DOHME CORP. [Suspect]
     Indication: BREAST CANCER
     Dosage: 150MG X1 DAY OF CHEMO IV DRIP
     Route: 041
     Dates: start: 20110620
  5. CYTOXAN [Concomitant]

REACTIONS (3)
  - ANGIOEDEMA [None]
  - BACK PAIN [None]
  - DYSPNOEA [None]
